FAERS Safety Report 6255081-X (Version None)
Quarter: 2009Q3

REPORT INFORMATION
  Report Type: 
  Country: None (occurrence: None)
  Receive Date: 20090702
  Receipt Date: 20090620
  Transmission Date: 20100115
  Serious: Yes (Death, Hospitalization)
  Sender: FDA-Public Use
  Company Number: MY-SANOFI-SYNTHELABO-A01200906609

PATIENT
  Age: 33 Year
  Sex: Female

DRUGS (7)
  1. FLAGYL [Concomitant]
     Dosage: 500 MG
     Route: 048
     Dates: start: 20090615, end: 20090620
  2. ROCEPHIN [Concomitant]
     Dosage: 2 MG
     Route: 048
     Dates: start: 20090614, end: 20090620
  3. HYDROCORTISONE [Concomitant]
     Dosage: 100 MG
     Route: 048
     Dates: start: 20090614, end: 20090620
  4. LOCALTRIOL [Concomitant]
     Indication: RHEUMATOID ARTHRITIS
     Dosage: 0.5 MIC
     Route: 048
     Dates: start: 20090425, end: 20090620
  5. PLAQUENIL [Suspect]
     Indication: RHEUMATOID ARTHRITIS
     Dosage: 200 MG
     Route: 048
     Dates: start: 20090425, end: 20090620
  6. PREDNISOLONE [Concomitant]
     Indication: RHEUMATOID ARTHRITIS
     Dosage: 20 MG
     Route: 048
     Dates: start: 20090425, end: 20090620
  7. ARAVA [Suspect]
     Indication: RHEUMATOID ARTHRITIS
     Dosage: 10 MG
     Route: 048
     Dates: start: 20090528, end: 20090614

REACTIONS (7)
  - CONVULSION [None]
  - GASTROENTERITIS [None]
  - HYPOTENSION [None]
  - HYPOXIA [None]
  - METABOLIC ACIDOSIS [None]
  - SEPSIS [None]
  - SYSTEMIC LUPUS ERYTHEMATOSUS [None]
